FAERS Safety Report 8012332-9 (Version None)
Quarter: 2011Q4

REPORT INFORMATION
  Report Type: 
  Country: None (occurrence: None)
  Receive Date: 20111228
  Receipt Date: 20111221
  Transmission Date: 20120403
  Serious: Yes (Hospitalization)
  Sender: FDA-Public Use
  Company Number: US-TEVA-314678USA

PATIENT
  Sex: Female

DRUGS (30)
  1. ROSUVASTATIN CALCIUM [Concomitant]
     Indication: HYPERCHOLESTEROLAEMIA
     Dosage: 20 MILLIGRAM;
  2. SILICON DIOXIDE W/SIMETICONE [Concomitant]
     Indication: FLATULENCE
     Dates: start: 20110110
  3. ENOXAPARIN SODIUM [Concomitant]
     Indication: PULMONARY EMBOLISM
     Dosage: 120 MILLIGRAM;
     Dates: start: 20110328
  4. NOVOFINE [Concomitant]
     Indication: DIABETES MELLITUS
     Dates: start: 20081215
  5. FISH OIL [Concomitant]
     Indication: MEDICAL DIET
     Dosage: 1000 MILLIGRAM;
  6. ESOMEPRAZOLE [Concomitant]
     Indication: GASTROOESOPHAGEAL REFLUX DISEASE
     Dosage: 1 DOSAGE FORMS;
  7. INSULIN DETEMIR [Concomitant]
     Indication: DIABETES MELLITUS
     Dosage: 30 UNITS
     Dates: start: 20081215
  8. COLECALCIFEROL [Concomitant]
     Indication: MEDICAL DIET
     Dosage: 1000 UNITS
  9. HYPROMELLOSE [Concomitant]
     Dates: start: 20110929
  10. ABT-888 [Suspect]
     Indication: NEOPLASM
     Dosage: 160 MILLIGRAM; DAYS 15-19 IN CYCLE 1, DAYS 1-5 AND 15-19 OF EACH SUBSEQUENT CYCLE
     Route: 048
     Dates: start: 20110124, end: 20110311
  11. INSULIN ASPART [Concomitant]
     Indication: DIABETES MELLITUS
     Dosage: SLIDING SCALE,BEFORE MEALS AS DIRECTED
     Dates: start: 20090605
  12. LEVOTHYROXINE SODIUM [Concomitant]
     Indication: HYPOTHYROIDISM
     Dosage: 100 MICROGRAM;
  13. CALCIUM D3 [Concomitant]
     Indication: MEDICAL DIET
  14. GLUTATHIONE [Concomitant]
     Indication: MEDICAL DIET
     Dosage: 50 MILLIGRAM;
     Dates: start: 20110205
  15. MAGIC MOUTHWASH [Concomitant]
     Indication: STOMATITIS
     Dates: start: 20110228
  16. IRINOTECAN HCL [Suspect]
     Indication: NEOPLASM
     Dosage: ON DAY 1 OF EACH 28 DAY CYCLE
     Route: 042
     Dates: start: 20110110
  17. LEUCOVORIN CALCIUM [Suspect]
     Indication: NEOPLASM
     Dosage: ON DAY 1 OF EACH 28 DAY CYCLE
     Route: 042
     Dates: start: 20110110
  18. ENOXAPARIN SODIUM [Concomitant]
     Indication: DEEP VEIN THROMBOSIS
     Dosage: 100 MILLIGRAM;
     Dates: start: 20090928, end: 20110328
  19. FENTANYL [Concomitant]
     Indication: BACK PAIN
     Route: 062
     Dates: start: 20101228
  20. GLYCERYL TRINITRATE [Concomitant]
     Indication: CORONARY ARTERY DISEASE
     Dosage: DISSOLVE 1 TABLET UNDER TONGUE EVERY 5 MINUTES UP TO 3 DOSES CHEST PAIN
     Route: 060
  21. ALPHA-D-GALACTOSIDASE [Concomitant]
     Indication: FLATULENCE
     Dates: start: 20110110
  22. LOPERAMIDE HCL [Concomitant]
     Indication: DIARRHOEA
     Dosage: 1-2
     Dates: start: 20110221
  23. DOCOSANOL [Concomitant]
     Indication: STOMATITIS
     Dates: start: 20110126
  24. ASPIRIN [Concomitant]
     Dosage: 325 MILLIGRAM;
  25. PRASUGREL HYDROCHLORIDE [Concomitant]
     Indication: CORONARY ARTERY DISEASE
     Dosage: 10 MILLIGRAM;
     Dates: start: 20100401
  26. MULTI-VITAMIN [Concomitant]
     Indication: MEDICAL DIET
     Dosage: 1 TABLET;
  27. FLUOROURACIL [Suspect]
     Indication: NEOPLASM
     Dosage: 46 HR INFUSION ON DAY 1 AND 15 OF EACH 28 DAY CYCLE
     Route: 042
     Dates: start: 20110110
  28. OXYCODONE HCL AND ACETAMINOPHEN [Concomitant]
     Indication: BACK PAIN
     Dosage: 5/325MG EVERY 4-5 HOURS AS NEEDED
  29. PANCREATIN TRIPLE STRENGTH CAP [Concomitant]
     Indication: MEDICAL DIET
     Dosage: WITH MEALS (3 CAPSULE)
  30. MILK THISTLE [Concomitant]
     Indication: MEDICAL DIET
     Dosage: 200 MILLIGRAM;
     Dates: start: 20110205

REACTIONS (1)
  - PYREXIA [None]
